FAERS Safety Report 4907337-8 (Version None)
Quarter: 2006Q1

REPORT INFORMATION
  Report Type: 
  Country: None (occurrence: None)
  Receive Date: 20060208
  Receipt Date: 20060208
  Transmission Date: 20060701
  Serious: Yes (Other)
  Sender: FDA-Public Use
  Company Number: None

PATIENT
  Age: 43 Year
  Sex: Female
  Weight: 54.4316 kg

DRUGS (1)
  1. HABITROL [Suspect]
     Indication: SMOKING CESSATION THERAPY
     Dosage: 21 MG    ONE PER DAY   CUTANEOUS
     Route: 003
     Dates: start: 20060116, end: 20060121

REACTIONS (3)
  - HEART RATE INCREASED [None]
  - HYPERHIDROSIS [None]
  - PALPITATIONS [None]
